FAERS Safety Report 4949864-3 (Version None)
Quarter: 2006Q1

REPORT INFORMATION
  Report Type: 
  Country: None (occurrence: None)
  Receive Date: 20060315
  Receipt Date: 20060224
  Transmission Date: 20060701
  Serious: Yes (Hospitalization, Other)
  Sender: FDA-Public Use
  Company Number: US200512000046

PATIENT
  Age: 24 Year
  Sex: Female
  Weight: 175 kg

DRUGS (2)
  1. ZYPREXA [Suspect]
     Indication: DEPRESSION
     Dosage: 25 MG, DAILY (1/D), ORAL
     Route: 048
     Dates: start: 20020101, end: 20050309
  2. CYMBALTA [Concomitant]

REACTIONS (11)
  - BLOOD GLUCOSE INCREASED [None]
  - BLOOD TRIGLYCERIDES INCREASED [None]
  - C-REACTIVE PROTEIN INCREASED [None]
  - COMPUTERISED TOMOGRAM ABDOMEN ABNORMAL [None]
  - DIABETES MELLITUS [None]
  - DISEASE RECURRENCE [None]
  - GLYCOSYLATED HAEMOGLOBIN INCREASED [None]
  - HEPATIC STEATOSIS [None]
  - LEUKOCYTOSIS [None]
  - PANCREATITIS ACUTE [None]
  - WHITE BLOOD CELL COUNT INCREASED [None]
